FAERS Safety Report 6864084-3 (Version None)
Quarter: 2010Q3

REPORT INFORMATION
  Report Type: 
  Country: None (occurrence: None)
  Receive Date: 20100721
  Receipt Date: 20080811
  Transmission Date: 20110219
  Serious: Yes (Other)
  Sender: FDA-Public Use
  Company Number: US-PFIZER INC-2008022077

PATIENT
  Sex: Female
  Weight: 61.2 kg

DRUGS (7)
  1. CHANTIX [Suspect]
     Indication: SMOKING CESSATION THERAPY
     Dates: start: 20080201
  2. TRAZODONE HYDROCHLORIDE [Concomitant]
  3. KLONOPIN [Concomitant]
  4. MAXZIDE [Concomitant]
  5. PROZAC [Concomitant]
  6. RISPERIDONE [Concomitant]
  7. ALCOHOL [Concomitant]

REACTIONS (5)
  - AGITATION [None]
  - BLOOD CHOLESTEROL INCREASED [None]
  - HOSTILITY [None]
  - IRRITABILITY [None]
  - SUICIDAL IDEATION [None]
